FAERS Safety Report 8019981-2 (Version None)
Quarter: 2012Q1

REPORT INFORMATION
  Report Type: 
  Country: None (occurrence: None)
  Receive Date: 20120103
  Receipt Date: 20120103
  Transmission Date: 20120608
  Serious: Yes (Hospitalization, Other)
  Sender: FDA-Public Use
  Company Number: US-TEVA-310464USA

PATIENT
  Age: 3 Year
  Sex: Male

DRUGS (1)
  1. FLUOXETINE HCL [Suspect]
     Dosage: 12.6 MG/KG

REACTIONS (2)
  - ACCIDENTAL OVERDOSE [None]
  - INAPPROPRIATE ANTIDIURETIC HORMONE SECRETION [None]
